FAERS Safety Report 25417086 (Version 2)
Quarter: 2025Q3

REPORT INFORMATION
  Report Type: Spontaneous
  Country: JP (occurrence: JP)
  Receive Date: 20250610
  Receipt Date: 20250708
  Transmission Date: 20251021
  Serious: Yes (Death, Other)
  Sender: CSL BEHRING
  Company Number: JP-BEH-2025208552

PATIENT
  Sex: Male

DRUGS (2)
  1. BERINERT [Suspect]
     Active Substance: HUMAN C1-ESTERASE INHIBITOR
     Indication: Hereditary angioedema
     Route: 041
  2. BERINERT [Suspect]
     Active Substance: HUMAN C1-ESTERASE INHIBITOR
     Indication: Hereditary angioedema
     Route: 041

REACTIONS (1)
  - Hereditary angioedema [Fatal]
